FAERS Safety Report 8949201 (Version 2)
Quarter: 2012Q4

REPORT INFORMATION
  Report Type: 
  Country: US (occurrence: US)
  Receive Date: 20121121
  Receipt Date: 20121212
  Transmission Date: 20130627
  Serious: Yes (Death)
  Sender: FDA-Public Use
  Company Number: US-ASTELLAS-1116707

PATIENT
  Age: 77 Year
  Sex: Female

DRUGS (1)
  1. TARCEVA [Suspect]
     Indication: LUNG SQUAMOUS CELL CARCINOMA STAGE UNSPECIFIED
     Route: 048
     Dates: start: 20090318

REACTIONS (7)
  - Death [Fatal]
  - Decreased appetite [Unknown]
  - Nausea [Unknown]
  - Abdominal distension [Unknown]
  - Abdominal discomfort [Unknown]
  - Orthostatic hypotension [Unknown]
  - Diarrhoea [Unknown]
